FAERS Safety Report 8549048-6 (Version None)
Quarter: 2012Q3

REPORT INFORMATION
  Report Type: 
  Country: None (occurrence: None)
  Receive Date: 20120730
  Receipt Date: 20120725
  Transmission Date: 20120928
  Serious: No
  Sender: FDA-Public Use
  Company Number: US-PFIZER INC-2012180395

PATIENT
  Sex: Male

DRUGS (1)
  1. PRISTIQ [Suspect]
     Indication: DEPRESSION
     Dosage: 50 MG, DAILY
     Dates: start: 20120716

REACTIONS (12)
  - DECREASED APPETITE [None]
  - DIARRHOEA [None]
  - HYPERHIDROSIS [None]
  - DYSPEPSIA [None]
  - ANGER [None]
  - NAUSEA [None]
  - INSOMNIA [None]
  - CONDITION AGGRAVATED [None]
  - CRYING [None]
  - AGITATION [None]
  - FEELING ABNORMAL [None]
  - CONFUSIONAL STATE [None]
